FAERS Safety Report 7690139-X (Version None)
Quarter: 2011Q3

REPORT INFORMATION
  Report Type: 
  Country: None (occurrence: None)
  Receive Date: 20110811
  Receipt Date: 20110731
  Transmission Date: 20111222
  Serious: Yes (Other)
  Sender: FDA-Public Use
  Company Number: DSA_47329_2011

PATIENT
  Sex: Female

DRUGS (1)
  1. BUPROPION HYDROCHLORIDE [Suspect]
     Dosage: (300 MG AT ABOUT 50-60 TABLETS (15000 - 1800 MG) NOT THE PRESCRIBED AMOUNT ORAL)
     Route: 048
     Dates: start: 20110730, end: 20110730

REACTIONS (3)
  - INTENTIONAL OVERDOSE [None]
  - RESPIRATORY FAILURE [None]
  - SUICIDE ATTEMPT [None]
